FAERS Safety Report 6924566-2 (Version None)
Quarter: 2010Q3

REPORT INFORMATION
  Report Type: 
  Country: None (occurrence: None)
  Receive Date: 20100816
  Receipt Date: 20100806
  Transmission Date: 20110219
  Serious: Yes (Life-Threatening, Hospitalization)
  Sender: FDA-Public Use
  Company Number: DE-ELI_LILLY_AND_COMPANY-DE201008002880

PATIENT
  Sex: Female
  Weight: 40 kg

DRUGS (7)
  1. PEMETREXED [Suspect]
     Indication: HEAD AND NECK CANCER
     Dosage: 500 MG/M2, DAY ONE EVERY 21 DAYS
     Route: 042
     Dates: start: 20100526, end: 20100616
  2. CETUXIMAB [Suspect]
     Indication: HEAD AND NECK CANCER
     Dosage: 400 MG/M2, ON DAY 1
     Route: 042
     Dates: start: 20100526, end: 20100526
  3. CETUXIMAB [Suspect]
     Dosage: 250 MG/M2, WEEKLY (1/W)
     Route: 042
     Dates: end: 20100623
  4. CISPLATIN [Suspect]
     Indication: HEAD AND NECK CANCER
     Dosage: 75 MG/M2, DAY ONE EVERY 21 DAYS
     Route: 042
     Dates: start: 20100526, end: 20100616
  5. FOLIC ACID [Concomitant]
     Indication: PROPHYLAXIS
     Dates: start: 20100514, end: 20100707
  6. VITAMIN B-12 [Concomitant]
     Indication: PROPHYLAXIS
     Dates: start: 20100514, end: 20100707
  7. DEXAMETHASONE [Concomitant]
     Indication: PROPHYLAXIS

REACTIONS (3)
  - CEREBROVASCULAR ACCIDENT [None]
  - ENDOCARDITIS [None]
  - STAPHYLOCOCCAL BACTERAEMIA [None]
